FAERS Safety Report 20149532 (Version 3)
Quarter: 2023Q2

REPORT INFORMATION
  Report Type: Spontaneous
  Country: US (occurrence: US)
  Receive Date: 20211205
  Receipt Date: 20230613
  Transmission Date: 20230721
  Serious: Yes (Other)
  Sender: FDA-Public Use
  Company Number: US-GILEAD-2021-0557380

PATIENT
  Age: 62 Year
  Sex: Male
  Weight: 212 kg

DRUGS (19)
  1. VIREAD [Suspect]
     Active Substance: TENOFOVIR DISOPROXIL FUMARATE
     Indication: HIV infection
     Dosage: UNK
     Route: 048
     Dates: start: 2005, end: 201710
  2. BIKTARVY [Concomitant]
     Active Substance: BICTEGRAVIR SODIUM\EMTRICITABINE\TENOFOVIR ALAFENAMIDE FUMARATE
     Indication: HIV infection
  3. TENOFOVIR [Concomitant]
     Active Substance: TENOFOVIR
     Indication: HIV infection
  4. AMLODIPINE [Concomitant]
     Active Substance: AMLODIPINE BESYLATE
     Indication: Hypertension
  5. PREDNISONE [Concomitant]
     Active Substance: PREDNISONE
     Indication: Pain
  6. ALLOPURINOL [Concomitant]
     Active Substance: ALLOPURINOL
     Indication: Gout
  7. COLCHICINE [Concomitant]
     Active Substance: COLCHICINE
     Indication: Gout
  8. CRIXIVAN [Concomitant]
     Active Substance: INDINAVIR SULFATE
  9. ISENTRESS [Concomitant]
     Active Substance: RALTEGRAVIR POTASSIUM
  10. EPIVIR [Concomitant]
     Active Substance: LAMIVUDINE
  11. EPZICOM [Concomitant]
     Active Substance: ABACAVIR SULFATE\LAMIVUDINE
  12. NORVIR [Concomitant]
     Active Substance: RITONAVIR
  13. RETROVIR [Concomitant]
     Active Substance: ZIDOVUDINE
  14. TRIZIVIR [Concomitant]
     Active Substance: ABACAVIR SULFATE\LAMIVUDINE\ZIDOVUDINE
  15. VIDEX [Concomitant]
     Active Substance: DIDANOSINE
  16. VIRACEPT [Concomitant]
     Active Substance: NELFINAVIR MESYLATE
  17. VIRAMUNE [Concomitant]
     Active Substance: NEVIRAPINE
  18. ZIAGEN [Concomitant]
     Active Substance: ABACAVIR SULFATE
  19. ZERIT [Concomitant]
     Active Substance: STAVUDINE

REACTIONS (13)
  - Femur fracture [Not Recovered/Not Resolved]
  - Bone demineralisation [Not Recovered/Not Resolved]
  - Osteopenia [Not Recovered/Not Resolved]
  - Pain [Not Recovered/Not Resolved]
  - Emotional distress [Not Recovered/Not Resolved]
  - Anxiety [Not Recovered/Not Resolved]
  - Anhedonia [Not Recovered/Not Resolved]
  - Asthenia [Not Recovered/Not Resolved]
  - Fatigue [Not Recovered/Not Resolved]
  - Back pain [Not Recovered/Not Resolved]
  - Bone density decreased [Unknown]
  - Gait disturbance [Not Recovered/Not Resolved]
  - Loss of personal independence in daily activities [Not Recovered/Not Resolved]

NARRATIVE: CASE EVENT DATE: 20191101
